FAERS Safety Report 16343396 (Version 1)
Quarter: 2019Q2

REPORT INFORMATION
  Report Type: Report from Study
  Country: IT (occurrence: IT)
  Receive Date: 20190522
  Receipt Date: 20190522
  Transmission Date: 20190711
  Serious: Yes (Hospitalization)
  Sender: FDA-Public Use
  Company Number: IT-TEVA-2019-IT-1053201

PATIENT
  Age: 32 Year
  Sex: Female

DRUGS (2)
  1. VENLAFAXINE [Suspect]
     Active Substance: VENLAFAXINE HYDROCHLORIDE
     Indication: ANXIETY
     Route: 048
     Dates: start: 20190101, end: 20190101
  2. ENTUMIN 100 MG/ML GOCCE ORALI, SOLUZIONE [Suspect]
     Active Substance: CLOTHIAPINE
     Indication: ANXIETY
     Route: 048
     Dates: start: 20190101, end: 20190323

REACTIONS (3)
  - Panic attack [Not Recovered/Not Resolved]
  - Drug ineffective [Not Recovered/Not Resolved]
  - Anxiety [Not Recovered/Not Resolved]

NARRATIVE: CASE EVENT DATE: 20190323
